FAERS Safety Report 5777367-5 (Version None)
Quarter: 2008Q2

REPORT INFORMATION
  Report Type: 
  Country: None (occurrence: None)
  Receive Date: 20080618
  Receipt Date: 20080611
  Transmission Date: 20081010
  Serious: Yes (Hospitalization)
  Sender: FDA-Public Use
  Company Number: PHHO2008FR04753

PATIENT
  Sex: Female
  Weight: 66 kg

DRUGS (6)
  1. TASIGNA [Suspect]
     Indication: GASTROINTESTINAL STROMAL TUMOUR
     Dosage: 800MG DAILY
     Route: 048
     Dates: start: 20060727, end: 20061224
  2. TASIGNA [Suspect]
     Dosage: UNK
     Dates: start: 20061225, end: 20070101
  3. TASIGNA [Suspect]
     Dosage: UNK MG, UNK
     Route: 048
     Dates: start: 20070102, end: 20070124
  4. TASIGNA [Suspect]
     Dosage: 400 MG, UNK
     Dates: start: 20070125, end: 20070210
  5. TASIGNA [Suspect]
     Dosage: UNK
     Route: 048
     Dates: start: 20070211
  6. IMATINIB MESYLATE [Suspect]
     Indication: GASTROINTESTINAL STROMAL TUMOUR
     Dosage: 400MG DAILY
     Route: 048
     Dates: start: 20060727

REACTIONS (2)
  - ATRIAL FIBRILLATION [None]
  - ATRIOVENTRICULAR BLOCK FIRST DEGREE [None]
